FAERS Safety Report 5016797-6 (Version None)
Quarter: 2006Q2

REPORT INFORMATION
  Report Type: 
  Country: None (occurrence: None)
  Receive Date: 20060602
  Receipt Date: 20060322
  Transmission Date: 20061013
  Serious: Yes (Other)
  Sender: FDA-Public Use
  Company Number: US-GLAXOSMITHKLINE-A0598590A

PATIENT
  Age: 14 Year
  Sex: Female
  Weight: 61.4 kg

DRUGS (3)
  1. AUGMENTIN '125' [Suspect]
     Indication: SINUSITIS BACTERIAL
     Dosage: 2000MG TWICE PER DAY
     Route: 048
     Dates: start: 20060320, end: 20060322
  2. MOTRIN [Concomitant]
  3. ZYRTEC [Concomitant]

REACTIONS (3)
  - ARTHRALGIA [None]
  - CONVULSION [None]
  - DIARRHOEA [None]
